FAERS Safety Report 19506100 (Version 1)
Quarter: 2021Q3

REPORT INFORMATION
  Report Type: Spontaneous
  Country: US (occurrence: US)
  Receive Date: 20210707
  Receipt Date: 20210707
  Transmission Date: 20211014
  Serious: Yes (Hospitalization)
  Sender: FDA-Public Use
  Company Number: None

PATIENT
  Age: 73 Year
  Sex: Female

DRUGS (1)
  1. IBRANCE [Suspect]
     Active Substance: PALBOCICLIB
     Indication: BREAST CANCER FEMALE
     Dosage: ?  ON HOLD
     Route: 048
     Dates: start: 20171102

REACTIONS (2)
  - Iron deficiency anaemia [None]
  - White blood cell count decreased [None]

NARRATIVE: CASE EVENT DATE: 20210621
